FAERS Safety Report 4989995-5 (Version None)
Quarter: 2006Q2

REPORT INFORMATION
  Report Type: 
  Country: None (occurrence: None)
  Receive Date: 20060503
  Receipt Date: 20060425
  Transmission Date: 20061013
  Serious: Yes (Hospitalization)
  Sender: FDA-Public Use
  Company Number: GB-JNJFOC-20060405954

PATIENT
  Age: 55 Year
  Sex: Female

DRUGS (2)
  1. TOPAMAX [Suspect]
     Indication: EPILEPSY
     Route: 065
  2. PHENITOIN [Concomitant]

REACTIONS (2)
  - INTERVERTEBRAL DISC INJURY [None]
  - LIVER DISORDER [None]
